FAERS Safety Report 14547323 (Version 2)
Quarter: 2018Q1

REPORT INFORMATION
  Report Type: Spontaneous
  Country: US (occurrence: US)
  Receive Date: 20180219
  Receipt Date: 20180308
  Transmission Date: 20180509
  Serious: Yes (Other)
  Sender: FDA-Public Use
  Company Number: US-ASTELLAS-2018US008237

PATIENT
  Age: 55 Year
  Sex: Male

DRUGS (7)
  1. MELPHALAN. [Concomitant]
     Active Substance: MELPHALAN
  2. PREDNISONE. [Concomitant]
     Active Substance: PREDNISONE
  3. TACROLIMUS. [Suspect]
     Active Substance: TACROLIMUS
     Route: 065
  4. TACROLIMUS. [Suspect]
     Active Substance: TACROLIMUS
     Dosage: 0.5 MG, TWICE DAILY
     Route: 065
  5. MELPHALAN. [Concomitant]
     Active Substance: MELPHALAN
     Indication: PRODUCT USED FOR UNKNOWN INDICATION
     Dosage: UNK UNK, UNKNOWN FREQ.
     Route: 065
  6. TACROLIMUS. [Suspect]
     Active Substance: TACROLIMUS
     Indication: BONE MARROW TRANSPLANT
     Route: 065
  7. PREDNISONE. [Concomitant]
     Active Substance: PREDNISONE
     Indication: PRODUCT USED FOR UNKNOWN INDICATION
     Dosage: UNK UNK, UNKNOWN FREQ.
     Route: 065

REACTIONS (6)
  - Acute graft versus host disease [Unknown]
  - Blood creatinine increased [Unknown]
  - Myelodysplastic syndrome [Unknown]
  - Off label use [Unknown]
  - Toxic optic neuropathy [Recovered/Resolved]
  - Immunosuppressant drug level increased [Unknown]
